FAERS Safety Report 7206509-X (Version None)
Quarter: 2010Q4

REPORT INFORMATION
  Report Type: 
  Country: None (occurrence: None)
  Receive Date: 20101217
  Receipt Date: 20101214
  Transmission Date: 20110411
  Serious: Yes (Hospitalization)
  Sender: FDA-Public Use
  Company Number: 2010US000077

PATIENT
  Age: 62 Year
  Sex: Male

DRUGS (4)
  1. ENTEREG [Suspect]
     Indication: PROCEDURAL PAIN
     Dosage: 12 MG; PO
     Route: 048
     Dates: start: 20101028, end: 20101031
  2. GENTAMICIN [Concomitant]
  3. CLINDAMYCIN [Concomitant]
  4. LOVENOX [Concomitant]

REACTIONS (1)
  - PORTAL VEIN THROMBOSIS [None]
